FAERS Safety Report 8967149 (Version 1)
Quarter: 2012Q4

REPORT INFORMATION
  Report Type: 
  Country: FR (occurrence: FR)
  Receive Date: 20121214
  Receipt Date: 20121214
  Transmission Date: 20130627
  Serious: Yes (Hospitalization)
  Sender: FDA-Public Use
  Company Number: FR-TEVA-374677ISR

PATIENT
  Age: 82 Year
  Sex: Female

DRUGS (15)
  1. METHOTREXATE TEVA [Suspect]
     Indication: ACUTE LYMPHOCYTIC LEUKAEMIA
     Dosage: 15 Milligram Daily; on 07, 15 and 22-SEP-2012
     Route: 037
     Dates: start: 20120907, end: 20120922
  2. CYTARABINE [Suspect]
     Indication: ACUTE LYMPHOCYTIC LEUKAEMIA
     Dosage: 40 Milligram Daily; on 07, 15 and 22-SEP-2012
     Route: 037
     Dates: start: 20120907, end: 20120922
  3. SPRYCEL [Suspect]
     Indication: ACUTE LYMPHOCYTIC LEUKAEMIA
     Dosage: 140 Milligram Daily;
     Route: 048
     Dates: start: 20120907, end: 20120923
  4. DEPO-MEDROL (NOT TEVA PRODUCT) [Concomitant]
     Indication: ACUTE LYMPHOCYTIC LEUKAEMIA
     Dosage: on 07, 15 and 22-SEP-2012
     Route: 037
     Dates: start: 20120907, end: 20120922
  5. VINCRISTINE (POSSIBLE TEVA PRODUCT) [Concomitant]
     Indication: ACUTE LYMPHOCYTIC LEUKAEMIA
     Dosage: on 07, 14 and 21-SEP-2012
     Route: 048
     Dates: start: 20120907, end: 20120921
  6. DEXAMETHASONE (NOT TEVA PRODUCT) [Concomitant]
     Indication: ACUTE LYMPHOCYTIC LEUKAEMIA
     Dosage: on 07, 08, 14, 15, 21 and 22-SEP-2012
     Dates: start: 20120907, end: 20120922
  7. PLITICAN (NOT TEVA PRODUCT) [Concomitant]
     Dates: start: 20120907, end: 20120924
  8. TAZOCILLINE (NOT TEVA PRODUCT) [Concomitant]
     Dates: start: 20120911, end: 20120924
  9. VANCOMYCINE (NOT TEVA PRODUCT) [Concomitant]
     Dates: start: 20120917, end: 20121001
  10. INEXIUM (NOT TEVA PRODUCT) [Concomitant]
     Dates: start: 20120918, end: 20120926
  11. ZELITREX (NOT TEVA PRODUCT) [Concomitant]
  12. ZOPHREN (NOT TEVA PRODUCT) [Concomitant]
  13. ARANESP (NOT TEVA PRODUCT) [Concomitant]
  14. INSULIN (NOT TEVA PRODUCT) [Concomitant]
  15. LOXEN (NOT TEVA PRODUCT) [Concomitant]

REACTIONS (6)
  - Hypertensive crisis [Recovering/Resolving]
  - Coma [Recovered/Resolved]
  - Leukoencephalopathy [Recovering/Resolving]
  - Myoclonus [Recovered/Resolved]
  - Asterixis [Recovered/Resolved]
  - Subdural haemorrhage [Unknown]
